FAERS Safety Report 16687514 (Version 3)
Quarter: 2019Q3

REPORT INFORMATION
  Report Type: Spontaneous
  Country: US (occurrence: US)
  Receive Date: 20190809
  Receipt Date: 20190909
  Transmission Date: 20191004
  Serious: Yes (Other)
  Sender: FDA-Public Use
  Company Number: US-PFIZER INC-2019339414

PATIENT
  Age: 74 Year
  Sex: Female
  Weight: 77.98 kg

DRUGS (1)
  1. DAYPRO [Suspect]
     Active Substance: OXAPROZIN
     Indication: ARTHRITIS
     Dosage: UNK

REACTIONS (2)
  - Gastrointestinal haemorrhage [Unknown]
  - Drug hypersensitivity [Unknown]
